FAERS Safety Report 21274669 (Version 3)
Quarter: 2022Q4

REPORT INFORMATION
  Report Type: Spontaneous
  Country: US (occurrence: US)
  Receive Date: 20220831
  Receipt Date: 20221014
  Transmission Date: 20230113
  Serious: No
  Sender: FDA-Public Use
  Company Number: US-PFIZER INC-PV202200053236

PATIENT
  Age: 52 Year
  Sex: Female

DRUGS (1)
  1. IBRANCE [Suspect]
     Active Substance: PALBOCICLIB
     Indication: Breast cancer female
     Dosage: 100 MG (1 CAPSULE BY MOUTH DAILY ON DAYS 1-21 WITH 7 DAYS OFF OUT OF 28 DAY CYCLE)
     Route: 048

REACTIONS (2)
  - Cholelithiasis [Unknown]
  - Neoplasm progression [Unknown]
